FAERS Safety Report 6230650-1 (Version None)
Quarter: 2009Q2

REPORT INFORMATION
  Report Type: 
  Country: None (occurrence: None)
  Receive Date: 20090611
  Receipt Date: 20090604
  Transmission Date: 20091009
  Serious: Yes (Death, Hospitalization)
  Sender: FDA-Public Use
  Company Number: US025594

PATIENT
  Age: 74 Year
  Sex: Female
  Weight: 55 kg

DRUGS (1)
  1. TREANDA [Suspect]
     Indication: CHRONIC LYMPHOCYTIC LEUKAEMIA
     Dosage: 75 MG (75 MG, 1 IN 1 D), INTRAVENOUS
     Route: 042
     Dates: start: 20081125, end: 20081203

REACTIONS (2)
  - COMA [None]
  - ENCEPHALOPATHY [None]
